FAERS Safety Report 4967730-4 (Version None)
Quarter: 2006Q2

REPORT INFORMATION
  Report Type: 
  Country: None (occurrence: None)
  Receive Date: 20060410
  Receipt Date: 20060331
  Transmission Date: 20061013
  Serious: Yes (Other)
  Sender: FDA-Public Use
  Company Number: PHBS2006NZ04844

PATIENT
  Sex: Female

DRUGS (2)
  1. CLOZARIL [Suspect]
     Route: 048
     Dates: end: 20060309
  2. LITHIUM [Concomitant]

REACTIONS (1)
  - DIABETES INSIPIDUS [None]
